FAERS Safety Report 4744179-0 (Version None)
Quarter: 2005Q3

REPORT INFORMATION
  Report Type: 
  Country: None (occurrence: None)
  Receive Date: 20050810
  Receipt Date: 20050810
  Transmission Date: 20060218
  Serious: No
  Sender: FDA-Public Use
  Company Number: None

PATIENT
  Age: 61 Year
  Sex: Female
  Weight: 78.4723 kg

DRUGS (2)
  1. METHADONE 10 MG [Suspect]
     Indication: FIBROMYALGIA
     Dosage: ONE Q DAILY
  2. METHADONE 10 MG [Suspect]
     Indication: MYALGIA
     Dosage: ONE Q DAILY

REACTIONS (4)
  - BLOOD PRESSURE INCREASED [None]
  - HEADACHE [None]
  - NAUSEA [None]
  - PAIN IN EXTREMITY [None]
